FAERS Safety Report 15800315 (Version 19)
Quarter: 2022Q4

REPORT INFORMATION
  Report Type: Report from Study
  Country: US (occurrence: US)
  Receive Date: 20190108
  Receipt Date: 20221116
  Transmission Date: 20230113
  Serious: Yes (Other)
  Sender: FDA-Public Use
  Company Number: US-JAZZ-2019-US-000075

PATIENT
  Age: 45 Year
  Sex: Female

DRUGS (18)
  1. XYREM [Suspect]
     Active Substance: SODIUM OXYBATE
     Indication: Narcolepsy
     Dosage: 2.25 GRAM, BID
     Route: 048
     Dates: start: 200509, end: 200510
  2. XYREM [Suspect]
     Active Substance: SODIUM OXYBATE
     Indication: Cataplexy
     Dosage: DOSE ADJUSTMENT
     Route: 048
     Dates: start: 200510, end: 200807
  3. XYREM [Suspect]
     Active Substance: SODIUM OXYBATE
     Indication: Fibromyalgia
     Dosage: 4.5 GRAM, BID
     Route: 048
     Dates: start: 200807
  4. XYREM [Suspect]
     Active Substance: SODIUM OXYBATE
     Indication: Chronic fatigue syndrome
  5. XYREM [Suspect]
     Active Substance: SODIUM OXYBATE
     Indication: Somnolence
  6. LYRICA [Suspect]
     Active Substance: PREGABALIN
     Indication: Product used for unknown indication
     Dosage: 300 MG
  7. LYRICA [Suspect]
     Active Substance: PREGABALIN
     Dosage: 150 MG
  8. LYRICA [Suspect]
     Active Substance: PREGABALIN
     Dosage: 150 MG
  9. LYRICA [Suspect]
     Active Substance: PREGABALIN
     Dosage: 300 MG
  10. LYRICA [Suspect]
     Active Substance: PREGABALIN
     Dosage: 150 MG
  11. LYRICA [Suspect]
     Active Substance: PREGABALIN
     Dosage: 300 MG
  12. LYRICA [Suspect]
     Active Substance: PREGABALIN
     Dosage: 150 MG
  13. LYRICA [Suspect]
     Active Substance: PREGABALIN
     Dosage: 300 MG
  14. QUETIAPINE FUMARATE [Concomitant]
     Active Substance: QUETIAPINE FUMARATE
     Indication: Product used for unknown indication
     Dosage: UNK
     Dates: start: 201212
  15. DEPLIN [Concomitant]
     Active Substance: LEVOMEFOLATE CALCIUM
     Indication: Product used for unknown indication
  16. LAMICTAL [Concomitant]
     Active Substance: LAMOTRIGINE
     Indication: Product used for unknown indication
  17. TRAZODONE HCL [Concomitant]
     Active Substance: TRAZODONE HYDROCHLORIDE
     Indication: Product used for unknown indication
  18. XANAX [Concomitant]
     Active Substance: ALPRAZOLAM
     Indication: Product used for unknown indication

REACTIONS (12)
  - Chronic kidney disease [Not Recovered/Not Resolved]
  - Condition aggravated [Not Recovered/Not Resolved]
  - Suicidal ideation [Recovered/Resolved]
  - Bedridden [Not Recovered/Not Resolved]
  - Histamine intolerance [Not Recovered/Not Resolved]
  - Cardiac disorder [Unknown]
  - Dysphemia [Unknown]
  - Drug withdrawal syndrome [Recovered/Resolved]
  - Memory impairment [Recovered/Resolved]
  - Blood pressure increased [Not Recovered/Not Resolved]
  - Anxiety [Recovered/Resolved]
  - Off label use [Unknown]

NARRATIVE: CASE EVENT DATE: 20181201
